FAERS Safety Report 9413788 (Version 2)
Quarter: 2013Q3

REPORT INFORMATION
  Report Type: Spontaneous
  Country: CA (occurrence: CA)
  Receive Date: 20130723
  Receipt Date: 20130723
  Transmission Date: 20140515
  Serious: Yes (Hospitalization, Other)
  Sender: FDA-Public Use
  Company Number: CA-ROCHE-1250921

PATIENT
  Age: 36 Year
  Sex: Female

DRUGS (15)
  1. XOLAIR [Suspect]
     Indication: ASTHMA
     Route: 058
     Dates: start: 20120105
  2. XOLAIR [Suspect]
     Route: 058
     Dates: start: 20120220
  3. XOLAIR [Suspect]
     Route: 065
     Dates: start: 20120305
  4. XOLAIR [Suspect]
     Route: 065
     Dates: start: 20130205
  5. XOLAIR [Suspect]
     Route: 058
     Dates: start: 20130513
  6. XOLAIR [Suspect]
     Route: 058
     Dates: start: 20130528
  7. XOLAIR [Suspect]
     Dosage: MOST RECENT DOSE ON 09/JUL/2013.
     Route: 058
     Dates: start: 20130611
  8. XOLAIR [Suspect]
     Route: 065
     Dates: start: 20130709
  9. PULMICORT [Concomitant]
     Route: 065
     Dates: start: 20120305
  10. SALBUTAMOL [Concomitant]
  11. SYMBICORT [Concomitant]
  12. ALVESCO [Concomitant]
  13. VENTOLIN [Concomitant]
     Route: 065
     Dates: start: 20120503
  14. ATROVENT [Concomitant]
     Route: 065
     Dates: start: 20120503
  15. PREDNISONE [Concomitant]

REACTIONS (7)
  - Asthma [Recovered/Resolved]
  - Accident [Unknown]
  - Onychomadesis [Unknown]
  - Obstructive airways disorder [Unknown]
  - Wheezing [Unknown]
  - Muscle tightness [Recovered/Resolved]
  - Cough [Unknown]
